FAERS Safety Report 24122430 (Version 1)
Quarter: 2024Q3

REPORT INFORMATION
  Report Type: Report from Study
  Country: CA (occurrence: CA)
  Receive Date: 20240723
  Receipt Date: 20240723
  Transmission Date: 20241016
  Serious: Yes (Death, Other)
  Sender: REGENERON
  Company Number: CA-BAYER-2024A105434

PATIENT
  Sex: Female

DRUGS (1)
  1. EYLEA [Suspect]
     Active Substance: AFLIBERCEPT
     Indication: Retinal vein occlusion
     Dosage: UNK, SOLUTION FOR INJECTION
     Dates: start: 20171116

REACTIONS (2)
  - Cerebrovascular accident [Fatal]
  - Fall [Fatal]

NARRATIVE: CASE EVENT DATE: 20240613
